FAERS Safety Report 24926681 (Version 1)
Quarter: 2025Q1

REPORT INFORMATION
  Report Type: Other
  Country: FR (occurrence: FR)
  Receive Date: 20250205
  Receipt Date: 20250205
  Transmission Date: 20250409
  Serious: Yes (Life-Threatening, Hospitalization)
  Sender: ZYDUS PHARM
  Company Number: None

PATIENT

DRUGS (20)
  1. ATENOLOL [Interacting]
     Active Substance: ATENOLOL
     Indication: Hypertension
     Route: 048
     Dates: start: 2024, end: 20241203
  2. ATENOLOL [Interacting]
     Active Substance: ATENOLOL
     Route: 048
     Dates: start: 20241206, end: 20241208
  3. VIMPAT [Interacting]
     Active Substance: LACOSAMIDE
     Indication: Tonic clonic movements
     Route: 042
     Dates: start: 20241201, end: 20241201
  4. VIMPAT [Interacting]
     Active Substance: LACOSAMIDE
     Route: 042
     Dates: start: 20241202, end: 20241209
  5. VIMPAT [Interacting]
     Active Substance: LACOSAMIDE
     Route: 042
     Dates: start: 20241210, end: 20241210
  6. KEPPRA [Concomitant]
     Active Substance: LEVETIRACETAM
     Indication: Tonic clonic movements
     Route: 042
     Dates: start: 20241130, end: 20241130
  7. KEPPRA [Concomitant]
     Active Substance: LEVETIRACETAM
     Route: 042
     Dates: start: 20241201, end: 20241201
  8. KEPPRA [Concomitant]
     Active Substance: LEVETIRACETAM
     Route: 042
     Dates: start: 20241202, end: 20241202
  9. KEPPRA [Concomitant]
     Active Substance: LEVETIRACETAM
     Route: 042
     Dates: start: 20241203, end: 20241215
  10. KEPPRA [Concomitant]
     Active Substance: LEVETIRACETAM
     Route: 042
     Dates: start: 20241216, end: 20241218
  11. VALPROATE SODIUM [Concomitant]
     Active Substance: VALPROATE SODIUM
     Indication: Tonic clonic movements
     Route: 042
     Dates: start: 20241203, end: 20241218
  12. KARDEGIC [Concomitant]
     Active Substance: ASPIRIN DL-LYSINE
     Indication: Thrombosis prophylaxis
     Route: 048
     Dates: start: 2024, end: 20241127
  13. KARDEGIC [Concomitant]
     Active Substance: ASPIRIN DL-LYSINE
     Route: 048
     Dates: start: 20241207
  14. ENOXAPARIN SODIUM [Concomitant]
     Active Substance: ENOXAPARIN SODIUM
     Indication: Thrombosis prophylaxis
     Route: 058
     Dates: start: 20241128, end: 20241210
  15. PERINDOPRIL ERBUMINE [Concomitant]
     Active Substance: PERINDOPRIL ERBUMINE
     Indication: Hypertension
     Route: 048
     Dates: start: 2024, end: 20241203
  16. PERINDOPRIL ERBUMINE [Concomitant]
     Active Substance: PERINDOPRIL ERBUMINE
     Route: 048
     Dates: start: 20241207, end: 20241210
  17. NICARDIPINE HYDROCHLORIDE [Concomitant]
     Active Substance: NICARDIPINE HYDROCHLORIDE
     Indication: Hypertension
     Route: 042
     Dates: start: 20241128, end: 20241210
  18. NOVORAPID [Concomitant]
     Active Substance: INSULIN ASPART
     Indication: Type 2 diabetes mellitus
     Route: 058
     Dates: start: 20241128, end: 20241218
  19. LEVOTHYROXINE [Concomitant]
     Active Substance: LEVOTHYROXINE
     Indication: Dyslipidaemia
     Route: 048
     Dates: start: 2024
  20. ACETAMINOPHEN [Concomitant]
     Active Substance: ACETAMINOPHEN
     Indication: Pain
     Route: 042
     Dates: start: 20241127

REACTIONS (2)
  - Drug interaction [Recovered/Resolved]
  - Atrioventricular block complete [Recovered/Resolved]

NARRATIVE: CASE EVENT DATE: 20241201
